FAERS Safety Report 11860591 (Version 1)
Quarter: 2015Q4

REPORT INFORMATION
  Report Type: Spontaneous
  Country: US (occurrence: US)
  Receive Date: 20151222
  Receipt Date: 20151222
  Transmission Date: 20160305
  Serious: No
  Sender: FDA-Public Use
  Company Number: US-ROXANE LABORATORIES, INC.-2015-RO-02127RO

PATIENT
  Sex: Male

DRUGS (1)
  1. DEXAMETHASONE TABLETS USP, 0.5 MG [Suspect]
     Active Substance: DEXAMETHASONE
     Indication: BLOOD CORTISOL DECREASED
     Dosage: 0.25 MG
     Route: 065

REACTIONS (2)
  - Blood pressure increased [Not Recovered/Not Resolved]
  - Dizziness [Unknown]
